FAERS Safety Report 18872233 (Version 1)
Quarter: 2021Q1

REPORT INFORMATION
  Report Type: Spontaneous
  Country: US (occurrence: US)
  Receive Date: 20210210
  Receipt Date: 20210210
  Transmission Date: 20210420
  Serious: Yes (Disabling, Other)
  Sender: FDA-Public Use
  Company Number: None

PATIENT
  Age: 30 Year
  Sex: Female
  Weight: 130.5 kg

DRUGS (12)
  1. DORNASE [Concomitant]
     Active Substance: STREPTODORNASE\STREPTOKINASE
  2. WOMENS DAILY VITAMIN [Concomitant]
  3. ALBUTEROL. [Concomitant]
     Active Substance: ALBUTEROL
  4. TOBRAMYCIN. [Concomitant]
     Active Substance: TOBRAMYCIN
  5. BUDESONIDE. [Concomitant]
     Active Substance: BUDESONIDE
  6. NEBULIZER [Concomitant]
     Active Substance: DEVICE
  7. VITAMIN D WITH CALCIUM [Concomitant]
     Active Substance: CALCIUM\CHOLECALCIFEROL
  8. PRILOSEC [Concomitant]
     Active Substance: OMEPRAZOLE MAGNESIUM
  9. HYPERTONIC SALINE [Concomitant]
     Active Substance: SODIUM CHLORIDE
  10. TRIKAFTA [Suspect]
     Active Substance: ELEXACAFTOR\IVACAFTOR\TEZACAFTOR
     Indication: CYSTIC FIBROSIS
     Dosage: ?          QUANTITY:3 CAPSULE(S);?
     Route: 048
     Dates: start: 20201204
  11. AZYTHROMYCIN [Concomitant]
     Active Substance: AZITHROMYCIN ANHYDROUS
  12. VEST CHEST THERAPY [Concomitant]

REACTIONS (4)
  - Peripheral swelling [None]
  - Joint swelling [None]
  - Depression [None]
  - Suicidal ideation [None]

NARRATIVE: CASE EVENT DATE: 20201205
